FAERS Safety Report 7195867 (Version 5)
Quarter: 2020Q2

REPORT INFORMATION
  Report Type: Report from Study
  Country: GB (occurrence: GB)
  Receive Date: 20091201
  Receipt Date: 20200605
  Transmission Date: 20200714
  Serious: Yes (Hospitalization, Other)
  Sender: FDA-Public Use
  Company Number: GB-PFIZER INC-2009300741

PATIENT
  Age: 45 Year
  Sex: Female

DRUGS (10)
  1. MORPHINE SULFATE. [Concomitant]
     Active Substance: MORPHINE SULFATE
  2. OMEPRAZOLE. [Suspect]
     Active Substance: OMEPRAZOLE
     Dosage: UNK
  3. IBUPROFEN. [Concomitant]
     Active Substance: IBUPROFEN
  4. DEXAMETHASONE. [Concomitant]
     Active Substance: DEXAMETHASONE
     Indication: PROPHYLAXIS OF NAUSEA AND VOMITING
  5. METOCLOPRAMIDE. [Concomitant]
     Active Substance: METOCLOPRAMIDE
  6. ERYTHROMYCIN. [Interacting]
     Active Substance: ERYTHROMYCIN
     Indication: PROPHYLAXIS
     Dosage: UNK
     Dates: start: 1995
  7. DOCETAXEL. [Interacting]
     Active Substance: DOCETAXEL
     Dosage: 75 MG/M2, CYCLIC
  8. DOXORUBICIN [Suspect]
     Active Substance: DOXORUBICIN
     Indication: BREAST CANCER METASTATIC
     Dosage: 50 MG/M2, CYCLIC (2 CYCLES)
     Route: 042
  9. DOCETAXEL. [Interacting]
     Active Substance: DOCETAXEL
     Indication: BREAST CANCER METASTATIC
     Dosage: 150 MG/M2, CYCLIC, 2 CYCLES
  10. GRANISETRON [Concomitant]
     Active Substance: GRANISETRON
     Indication: PROPHYLAXIS OF NAUSEA AND VOMITING

REACTIONS (10)
  - Vomiting [Unknown]
  - Drug interaction [Unknown]
  - Jaundice cholestatic [Unknown]
  - Febrile neutropenia [Unknown]
  - Abdominal distension [Unknown]
  - Abdominal pain [Unknown]
  - Rash erythematous [Unknown]
  - Pseudomembranous colitis [Unknown]
  - Diarrhoea [Recovered/Resolved]
  - Haematemesis [Unknown]
